FAERS Safety Report 13415301 (Version 1)
Quarter: 2017Q2

REPORT INFORMATION
  Report Type: Spontaneous
  Country: JP (occurrence: JP)
  Receive Date: 20170406
  Receipt Date: 20170406
  Transmission Date: 20170830
  Serious: Yes (Hospitalization)
  Sender: FDA-Public Use
  Company Number: JP-ACTELION-A-CH2016-134524

PATIENT
  Age: 81 Year
  Sex: Female

DRUGS (7)
  1. WARFARIN [Concomitant]
     Active Substance: WARFARIN
  2. OPSUMIT [Suspect]
     Active Substance: MACITENTAN
     Indication: PULMONARY ARTERIAL HYPERTENSION
     Dosage: 10 MG, OD
     Route: 048
     Dates: start: 20151217
  3. ADCIRCA [Concomitant]
     Active Substance: TADALAFIL
  4. REVATIO [Concomitant]
     Active Substance: SILDENAFIL CITRATE
  5. OXYGEN. [Concomitant]
     Active Substance: OXYGEN
  6. CARELOAD [Concomitant]
     Active Substance: BERAPROST SODIUM
  7. DIOVAN [Concomitant]
     Active Substance: VALSARTAN

REACTIONS (4)
  - Oedema [Recovering/Resolving]
  - White blood cell count increased [Recovered/Resolved]
  - Anaemia [Recovering/Resolving]
  - Pneumonia aspiration [Recovered/Resolved]

NARRATIVE: CASE EVENT DATE: 20160126
